FAERS Safety Report 18928792 (Version 2)
Quarter: 2021Q1

REPORT INFORMATION
  Report Type: Other
  Country: CA (occurrence: CA)
  Receive Date: 20210223
  Receipt Date: 20210324
  Transmission Date: 20210420
  Serious: Yes (Other)
  Sender: FDA-Public Use
  Company Number: CA-ROCHE-2749595

PATIENT
  Age: 49 Year
  Sex: Female
  Weight: 84 kg

DRUGS (5)
  1. DIPHENHYDRAMINE. [Concomitant]
     Active Substance: DIPHENHYDRAMINE
     Indication: PREMEDICATION
     Dosage: DRUG DOSE FIRST ADMINISTERED IS 50 MG MILLIGRAM(S)
     Route: 042
     Dates: start: 20200813
  2. SYNTHROID [Concomitant]
     Active Substance: LEVOTHYROXINE SODIUM
     Dosage: DRUG DOSE FIRST ADMINISTERED IS 112 MG MICROGRAM(S)
     Route: 048
  3. ACTEMRA [Suspect]
     Active Substance: TOCILIZUMAB
     Indication: RHEUMATOID ARTHRITIS
     Dosage: 200 MG/10 ML VIAL
     Route: 042
     Dates: start: 20200813
  4. METHOTREXATE. [Concomitant]
     Active Substance: METHOTREXATE
  5. ACETAMINOPHEN. [Concomitant]
     Active Substance: ACETAMINOPHEN
     Indication: PREMEDICATION
     Dosage: DRUG DOSE FIRST ADMINISTERED IS 650 MG MILLIGRAM(S)
     Route: 048
     Dates: start: 20200813

REACTIONS (7)
  - Hepatic steatosis [Not Recovered/Not Resolved]
  - Macrocytosis [Unknown]
  - Lipase increased [Unknown]
  - Hepatic steatosis [Unknown]
  - Cyst [Recovered/Resolved]
  - Abdominal pain upper [Unknown]
  - Ultrasound pancreas abnormal [Unknown]

NARRATIVE: CASE EVENT DATE: 202012
